FAERS Safety Report 5909154-9 (Version None)
Quarter: 2008Q4

REPORT INFORMATION
  Report Type: 
  Country: None (occurrence: None)
  Receive Date: 20081006
  Receipt Date: 20080926
  Transmission Date: 20090506
  Serious: Yes (Hospitalization)
  Sender: FDA-Public Use
  Company Number: US-AMGEN-QUU307697

PATIENT
  Sex: Female
  Weight: 61.7 kg

DRUGS (12)
  1. ENBREL [Suspect]
     Indication: RHEUMATOID ARTHRITIS
     Route: 058
     Dates: start: 20070617
  2. UNSPECIFIED MEDICATION [Suspect]
     Route: 050
     Dates: start: 20080806
  3. PLAQUENIL [Concomitant]
     Route: 048
  4. WELLBUTRIN [Concomitant]
     Dates: start: 20080813
  5. FLONASE [Concomitant]
     Dates: start: 20080806
  6. VITAMIN D [Concomitant]
     Dates: start: 20080201
  7. CALCIUM [Concomitant]
     Dates: start: 20080201
  8. METFORMIN HCL [Concomitant]
  9. PRILOSEC [Concomitant]
  10. XALATAN [Concomitant]
  11. PROGESTERONE [Concomitant]
  12. LISINOPRIL [Concomitant]

REACTIONS (2)
  - OSTEOARTHRITIS [None]
  - RHEUMATOID ARTHRITIS [None]
